FAERS Safety Report 4929408-2 (Version None)
Quarter: 2006Q1

REPORT INFORMATION
  Report Type: 
  Country: None (occurrence: None)
  Receive Date: 20060224
  Receipt Date: 20060209
  Transmission Date: 20060701
  Serious: Yes (Death)
  Sender: FDA-Public Use
  Company Number: A-CH2006-11485

PATIENT
  Age: 41 Year
  Sex: Female
  Weight: 39 kg

DRUGS (5)
  1. TRACLEER [Suspect]
     Indication: PULMONARY HYPERTENSION
     Dosage: 31.25 MG, BID, ORAL
     Route: 048
     Dates: start: 20050110
  2. MARCUMAR [Concomitant]
  3. SOTALOL HCL [Concomitant]
  4. DYTIDE H (TRIAMTERENE, HYDROCHLOROTHIAZIDE) [Concomitant]
  5. DIGOXIN [Concomitant]

REACTIONS (1)
  - VENTRICULAR FIBRILLATION [None]
